FAERS Safety Report 19680002 (Version 1)
Quarter: 2021Q3

REPORT INFORMATION
  Report Type: Spontaneous
  Country: US (occurrence: US)
  Receive Date: 20210810
  Receipt Date: 20210810
  Transmission Date: 20211014
  Serious: Yes (Disabling)
  Sender: FDA-Public Use
  Company Number: None

PATIENT
  Age: 42 Year
  Sex: Female
  Weight: 58.5 kg

DRUGS (1)
  1. SPIRONOLACTONE (GENERIC FOR ALDACTONE) [Suspect]
     Active Substance: SPIRONOLACTONE
     Indication: ACNE
     Dosage: ?          QUANTITY:1 CAPSULE(S);?
     Route: 048

REACTIONS (5)
  - Acne [None]
  - Meibomian gland dysfunction [None]
  - Ear discomfort [None]
  - Vertigo [None]
  - Dry eye [None]

NARRATIVE: CASE EVENT DATE: 20210304
